FAERS Safety Report 5018498-7 (Version None)
Quarter: 2006Q2

REPORT INFORMATION
  Report Type: 
  Country: None (occurrence: None)
  Receive Date: 20060530
  Receipt Date: 20060426
  Transmission Date: 20061013
  Serious: Yes (Other)
  Sender: FDA-Public Use
  Company Number: 2005065415

PATIENT
  Age: 73 Year
  Sex: Female

DRUGS (1)
  1. LYRICA [Suspect]
     Indication: POST HERPETIC NEURALGIA
     Dosage: 150 MG (1 IN 1 D), ORAL
     Route: 048
     Dates: start: 20050220, end: 20050221

REACTIONS (2)
  - URINARY RETENTION [None]
  - WHITE BLOOD CELLS URINE POSITIVE [None]
